FAERS Safety Report 5642234-4 (Version None)
Quarter: 2008Q1

REPORT INFORMATION
  Report Type: 
  Country: None (occurrence: None)
  Receive Date: 20080225
  Receipt Date: 20080213
  Transmission Date: 20080703
  Serious: Yes (Hospitalization, Other)
  Sender: FDA-Public Use
  Company Number: WAES 0802USA03077

PATIENT
  Age: 67 Year
  Sex: Male
  Weight: 90.7194 kg

DRUGS (2)
  1. DECADRON [Suspect]
     Dosage: PO
     Route: 048
  2. TEMODAR [Suspect]
     Indication: GLIOBLASTOMA MULTIFORME
     Dosage: 75 MG/ DAILY/ PO
     Route: 048
     Dates: start: 20071218

REACTIONS (10)
  - CHEST PAIN [None]
  - CHILLS [None]
  - COUGH [None]
  - HYPERGLYCAEMIA [None]
  - LOBAR PNEUMONIA [None]
  - NAUSEA [None]
  - PLEURAL EFFUSION [None]
  - PNEUMONIA [None]
  - THROMBOCYTOPENIA [None]
  - VOMITING [None]
